FAERS Safety Report 18017094 (Version 2)
Quarter: 2020Q3

REPORT INFORMATION
  Report Type: Spontaneous
  Country: US (occurrence: US)
  Receive Date: 20200714
  Receipt Date: 20200720
  Transmission Date: 20201103
  Serious: Yes (Other)
  Sender: FDA-Public Use
  Company Number: US-PFIZER INC-2020249102

PATIENT
  Age: 5 Year
  Sex: Female

DRUGS (4)
  1. DILANTIN [Suspect]
     Active Substance: PHENYTOIN
     Indication: EPILEPSY
     Dosage: 400 MG, ALTERNATE DAY (2 CAPS IN MORNING, 2 CAPS IN EVEN NIGHTS)
     Route: 048
     Dates: start: 1971
  2. DILANTIN [Suspect]
     Active Substance: PHENYTOIN
     Indication: SEIZURE
     Dosage: 500 MG, ALTERNATE DAY (2 CAPS IN MORNING, 3 CAPS IN ODD NIGHT)
     Route: 048
     Dates: start: 1971
  3. DILANTIN [Suspect]
     Active Substance: PHENYTOIN
     Dosage: 400 MG, ALTERNATE DAY (200MG IN MORNING AND 200MG AT NIGHT ON ODD DAYS)
  4. DILANTIN [Suspect]
     Active Substance: PHENYTOIN
     Dosage: 500 MG, ALTERNATE DAY (THEN TAKES 200MG IN MORNING AND 300MG AT NIGHT ON EVEN DAYS)

REACTIONS (2)
  - Hemiplegia [Unknown]
  - Prescribed overdose [Unknown]

NARRATIVE: CASE EVENT DATE: 1971
